FAERS Safety Report 5243592-5 (Version None)
Quarter: 2007Q1

REPORT INFORMATION
  Report Type: 
  Country: None (occurrence: None)
  Receive Date: 20070220
  Receipt Date: 20070220
  Transmission Date: 20070707
  Serious: Yes (Other)
  Sender: FDA-Public Use
  Company Number: None

PATIENT
  Sex: Male
  Weight: 87.9978 kg

DRUGS (4)
  1. FENTANYL [Suspect]
     Indication: BACK PAIN
     Dosage: 1 PATCH  Q 72 HRS  TRANSDERMAL
     Route: 062
     Dates: start: 20070212, end: 20070219
  2. FENTANYL [Suspect]
     Indication: NERVE INJURY
     Dosage: 1 PATCH  Q 72 HRS  TRANSDERMAL
     Route: 062
     Dates: start: 20070212, end: 20070219
  3. FENTANYL [Suspect]
     Indication: NEUROPATHY
     Dosage: 1 PATCH  Q 72 HRS  TRANSDERMAL
     Route: 062
     Dates: start: 20070212, end: 20070219
  4. FENTANYL [Suspect]
     Indication: PAIN
     Dosage: 1 PATCH  Q 72 HRS  TRANSDERMAL
     Route: 062
     Dates: start: 20070212, end: 20070219

REACTIONS (3)
  - DRUG WITHDRAWAL SYNDROME [None]
  - PAIN [None]
  - PHARMACEUTICAL PRODUCT COMPLAINT [None]
